APPROVED DRUG PRODUCT: PHEBURANE
Active Ingredient: SODIUM PHENYLBUTYRATE
Strength: 84GM/BOT
Dosage Form/Route: PELLETS;ORAL
Application: N216513 | Product #001
Applicant: MEDUNIK CANADA INC
Approved: Jun 17, 2022 | RLD: Yes | RS: Yes | Type: RX